FAERS Safety Report 21328377 (Version 1)
Quarter: 2022Q3

REPORT INFORMATION
  Report Type: Report from Study
  Country: TR (occurrence: TR)
  Receive Date: 20220913
  Receipt Date: 20220913
  Transmission Date: 20221026
  Serious: Yes (Hospitalization)
  Sender: FDA-Public Use
  Company Number: TR-ABBVIE-22K-161-4536359-00

PATIENT
  Age: 77 Year
  Sex: Female

DRUGS (5)
  1. CARBIDOPA\LEVODOPA [Suspect]
     Active Substance: CARBIDOPA\LEVODOPA
     Indication: Parkinson^s disease
     Dosage: MORNING DOSE (ML) 6.50 CONTINUOUS DOSE (ML) 3.90 EXTRA DOSE (ML) 1.00
     Route: 050
     Dates: start: 20180507
  2. CARBIDOPA\LEVODOPA [Suspect]
     Active Substance: CARBIDOPA\LEVODOPA
  3. BUTYLSCOPOLAMINE BROMIDE\MEDAZEPAM [Concomitant]
     Active Substance: BUTYLSCOPOLAMINE BROMIDE\MEDAZEPAM
     Indication: Anxiety
     Dosage: UNKNOW
     Route: 048
     Dates: start: 20180401
  4. BENSERAZIDE HYDROCHLORIDE\LEVODOPA [Concomitant]
     Active Substance: BENSERAZIDE HYDROCHLORIDE\LEVODOPA
     Indication: Parkinson^s disease
     Dosage: 1 CAPSULE TWICE A DAY
     Route: 048
     Dates: start: 20180507, end: 20180507
  5. RAMELDA [Concomitant]
     Indication: Sleep disorder
     Route: 048
     Dates: start: 20180507

REACTIONS (2)
  - Haematochezia [Recovered/Resolved]
  - Gastric haemorrhage [Recovered/Resolved]

NARRATIVE: CASE EVENT DATE: 20220908
